FAERS Safety Report 9580463 (Version 1)
Quarter: 2013Q3

REPORT INFORMATION
  Report Type: Spontaneous
  Country: US (occurrence: None)
  Receive Date: 20130916
  Receipt Date: 20130916
  Transmission Date: 20140515
  Serious: Yes (Hospitalization)
  Sender: FDA-Public Use
  Company Number: JPI-P-023498

PATIENT
  Age: 52 Year
  Sex: Female
  Weight: 75.75 kg

DRUGS (8)
  1. XYREM (500 MILLIGRAM/MILLILITERS, SOLUTION) (SODIUM OXYBATE) [Suspect]
     Indication: CATAPLEXY
     Route: 048
     Dates: start: 20120606, end: 20120704
  2. ATENOLOL [Concomitant]
  3. LAMOTRIGINE [Concomitant]
  4. ARMODAFINIL [Concomitant]
  5. VENLAFAXINE HYDROCHLORIDE [Concomitant]
  6. PROMETHAZINE HCL [Concomitant]
  7. ACETAMINOPHEN W/ BUTALBITAL; CAFFEINE [Concomitant]
  8. SUMATRIPTAN SUCCINCATE [Concomitant]

REACTIONS (10)
  - Hypokinesia [None]
  - Visual field defect [None]
  - Sluggishness [None]
  - Fatigue [None]
  - Nervousness [None]
  - Blood pressure increased [None]
  - Weight decreased [None]
  - Malaise [None]
  - Dysarthria [None]
  - Stress [None]
